FAERS Safety Report 8118748-4 (Version None)
Quarter: 2012Q1

REPORT INFORMATION
  Report Type: 
  Country: None (occurrence: None)
  Receive Date: 20120202
  Receipt Date: 20120120
  Transmission Date: 20120608
  Serious: Yes (Hospitalization)
  Sender: FDA-Public Use
  Company Number: DSM-2012-00065

PATIENT
  Age: 73 Year
  Sex: Female

DRUGS (11)
  1. FLECAINE (FLECAINIDE ACETATE) (100 MILLIGRAM, PROLONGED-RELEASE CAPSUL [Concomitant]
  2. PREVISCAN (FLUINDIONE) (FLUINDIONE) [Concomitant]
  3. DAONIL (GLIBENCLAMIDE) (5 MILLIGRAM, TABLET) (GLIBENCLAMIDE) [Concomitant]
  4. CORDARONE [Concomitant]
  5. GLUCOPHAGE (METFORMIN HYDROCHLORIDE) (1000 MILLIGRAM, TABLET) (METFORM [Concomitant]
  6. ALDACTONE [Suspect]
     Indication: HYPERTENSION
     Dosage: 50 MG (50 MG, 1 IN 1 D), ORAL
     Route: 048
     Dates: end: 20090320
  7. ALPRESS (PRAZOSIN HYDROCHLORIDE) (5 MILLIGRAM, TABLET) (PRAZOSIN HYDRO [Concomitant]
  8. BYETTA [Suspect]
     Indication: TYPE 2 DIABETES MELLITUS
     Dosage: 20 MCG (10 MCG, 2 IN 1 D), SUBCUTANEOUS
     Route: 058
     Dates: start: 20081001, end: 20090320
  9. RAMIPRIL [Suspect]
     Indication: HYPERTENSION
     Dosage: 10 MG (10 MG, 1 IN 1 D), ORAL
     Route: 048
     Dates: end: 20090320
  10. RAMIPRIL [Suspect]
     Indication: HYPERTENSION
     Dosage: 5 MG (5 MG, 1 IN 1 D), UNKNOWN
     Dates: start: 20090322, end: 20090324
  11. OLMESARTAN MEDOXOMIL AND HYDROCHLOROTHIZIDE [Suspect]
     Indication: HYPERTENSION
     Dosage: 20/12.5 MG (1 IN 1 D), ORAL
     Route: 048

REACTIONS (8)
  - BLOOD POTASSIUM DECREASED [None]
  - RENAL FAILURE ACUTE [None]
  - HYPERKALAEMIA [None]
  - ASTHENIA [None]
  - GENERAL PHYSICAL HEALTH DETERIORATION [None]
  - HAEMODIALYSIS [None]
  - DRUG INTERACTION [None]
  - BRADYCARDIA [None]
